FAERS Safety Report 7609448-5 (Version None)
Quarter: 2011Q3

REPORT INFORMATION
  Report Type: 
  Country: None (occurrence: None)
  Receive Date: 20110714
  Receipt Date: 20110705
  Transmission Date: 20111222
  Serious: Yes (Hospitalization, Other)
  Sender: FDA-Public Use
  Company Number: US-BAYER-2011-004032

PATIENT
  Age: 42 Year
  Sex: Female

DRUGS (14)
  1. YAZ [Suspect]
     Indication: PREMENSTRUAL SYNDROME
     Dosage: UNK
     Dates: start: 20070101, end: 20090101
  2. ZYRTEC [Concomitant]
     Route: 048
  3. HYDROMORPHONE HCL [Concomitant]
     Dosage: 2 MG, UNK
     Route: 048
  4. AUGMENTIN '125' [Concomitant]
     Dosage: 125 MG, UNK
     Dates: start: 20090106
  5. METHYLPREDNISOLONE [Concomitant]
     Dosage: 4 MG, UNK
     Route: 048
     Dates: start: 20091202
  6. LYRICA [Concomitant]
     Indication: PARAESTHESIA
     Dosage: 150 MG, UNK
     Route: 048
     Dates: start: 20060101
  7. SUMATRIPTAN SUCCINATE [Concomitant]
     Dosage: 100 MG, UNK
     Route: 048
  8. FLEXERIL [Concomitant]
     Dosage: 20 MG, QD
     Route: 048
  9. YAZ [Suspect]
     Indication: CONTRACEPTION
     Dosage: UNK
     Dates: start: 20070101, end: 20090101
  10. NITROFURANT MACRO [Concomitant]
     Dosage: 100 MG, UNK
     Route: 048
  11. MOTRIN [Concomitant]
     Indication: PAIN
     Dosage: 200 MG, UNK
     Route: 048
  12. CEPHALEXIN [Concomitant]
     Dosage: 500 MG, UNK
     Dates: start: 20081224
  13. IMITREX [Concomitant]
     Indication: MIGRAINE
     Dosage: UNK
     Dates: start: 20020101, end: 20090101
  14. AVAPRO [Concomitant]
     Indication: HYPERTENSION
     Dosage: 300 MG, UNK
     Route: 048
     Dates: start: 20080101

REACTIONS (9)
  - INJURY [None]
  - ANXIETY [None]
  - ANHEDONIA [None]
  - EMOTIONAL DISTRESS [None]
  - GENERAL PHYSICAL HEALTH DETERIORATION [None]
  - DEEP VEIN THROMBOSIS [None]
  - PAIN [None]
  - CHOLELITHIASIS [None]
  - MOBILITY DECREASED [None]
